FAERS Safety Report 18282896 (Version 1)
Quarter: 2020Q3

REPORT INFORMATION
  Report Type: Spontaneous
  Country: US (occurrence: US)
  Receive Date: 20200918
  Receipt Date: 20200918
  Transmission Date: 20201103
  Serious: Yes (Hospitalization)
  Sender: FDA-Public Use
  Company Number: None

PATIENT
  Age: 30 Year
  Sex: Male
  Weight: 61.1 kg

DRUGS (1)
  1. PACLITAXEL. [Suspect]
     Active Substance: PACLITAXEL
     Indication: ANGIOSARCOMA
     Dosage: ?          OTHER FREQUENCY:ONCE;?
     Route: 042
     Dates: start: 20200918, end: 20200918

REACTIONS (9)
  - Malaise [None]
  - Blood pressure decreased [None]
  - Flushing [None]
  - Vomiting [None]
  - Anaphylactic reaction [None]
  - Hyperhidrosis [None]
  - Erythema [None]
  - Pallor [None]
  - Heart rate increased [None]

NARRATIVE: CASE EVENT DATE: 20200918
